FAERS Safety Report 19488157 (Version 1)
Quarter: 2021Q3

REPORT INFORMATION
  Report Type: Spontaneous
  Country: TR (occurrence: TR)
  Receive Date: 20210702
  Receipt Date: 20210702
  Transmission Date: 20211014
  Serious: Yes (Other)
  Sender: FDA-Public Use
  Company Number: TR-CMP PHARMA-2021CMP00012

PATIENT
  Age: 37 Year
  Sex: Male

DRUGS (1)
  1. ISONIAZID. [Suspect]
     Active Substance: ISONIAZID
     Indication: PROPHYLAXIS
     Dosage: 300 MG, 1X/DAY
     Route: 065

REACTIONS (2)
  - Dermatitis [Recovering/Resolving]
  - Drug hypersensitivity [Recovering/Resolving]
